FAERS Safety Report 17590900 (Version 1)
Quarter: 2020Q1

REPORT INFORMATION
  Report Type: Spontaneous
  Country: CN (occurrence: CN)
  Receive Date: 20200327
  Receipt Date: 20200327
  Transmission Date: 20200409
  Serious: Yes (Hospitalization, Other)
  Sender: FDA-Public Use
  Company Number: CN-PFIZER INC-2020126354

PATIENT
  Age: 54 Year
  Sex: Female
  Weight: 62 kg

DRUGS (1)
  1. NORVASC [Suspect]
     Active Substance: AMLODIPINE BESYLATE
     Indication: BLOOD PRESSURE INCREASED
     Dosage: 5 MG, 1X/DAY
     Route: 048
     Dates: start: 20200310, end: 20200310

REACTIONS (5)
  - Peripheral vascular disorder [Unknown]
  - Cardiovascular disorder [Unknown]
  - Regurgitation [Unknown]
  - Oedema peripheral [Recovering/Resolving]
  - Hiccups [Unknown]

NARRATIVE: CASE EVENT DATE: 20200310
